FAERS Safety Report 10192297 (Version 1)
Quarter: 2014Q2

REPORT INFORMATION
  Report Type: Spontaneous
  Country: FR (occurrence: FR)
  Receive Date: 20140523
  Receipt Date: 20140523
  Transmission Date: 20141212
  Serious: Yes (Hospitalization)
  Sender: FDA-Public Use
  Company Number: FR-PFIZER INC-2014138415

PATIENT
  Age: 86 Year
  Sex: Female

DRUGS (6)
  1. ALDACTONE [Suspect]
     Indication: HYPERTENSION
     Dosage: 25 MG, 2X/DAY
     Route: 048
     Dates: end: 20140221
  2. LEXOMIL [Concomitant]
     Dosage: 1 DF, 1X/DAY
     Route: 048
  3. FLECAINE [Concomitant]
     Dosage: 50 MG, 1X/DAY
     Route: 048
  4. SPIFEN [Concomitant]
     Dosage: 400 MG, 2X/DAY
     Route: 048
     Dates: end: 20140221
  5. CACIT D3 [Concomitant]
     Dosage: UNK
     Route: 048
  6. FLECTOR [Concomitant]
     Dosage: 2 DF (1% GEL), DAILY
     Route: 003
     Dates: end: 20140221

REACTIONS (2)
  - Orthostatic hypotension [Recovered/Resolved]
  - Renal failure [Recovered/Resolved]
